FAERS Safety Report 5415461-9 (Version None)
Quarter: 2007Q3

REPORT INFORMATION
  Report Type: 
  Country: None (occurrence: None)
  Receive Date: 20070815
  Receipt Date: 20070803
  Transmission Date: 20080115
  Serious: Yes (Life-Threatening, Hospitalization)
  Sender: FDA-Public Use
  Company Number: GB-ROCHE-504540

PATIENT
  Age: 73 Year
  Sex: Female
  Weight: 76 kg

DRUGS (10)
  1. XENICAL [Suspect]
     Indication: OBESITY
     Route: 048
     Dates: start: 20070214, end: 20070614
  2. ATORVASTATIN CALCIUM [Concomitant]
     Route: 048
     Dates: start: 20050329
  3. LEVOTHYROXINE SODIUM [Concomitant]
     Indication: HYPOTHYROIDISM
     Route: 048
     Dates: start: 20000404
  4. CO-DYDRAMOL [Concomitant]
     Indication: ARTHRITIS
  5. ATENOLOL [Concomitant]
     Route: 048
     Dates: start: 20011113
  6. BENDROFLUMETHIAZIDE [Concomitant]
     Indication: HYPERTENSION
     Route: 048
     Dates: start: 20030404
  7. ISOSORBIDE MONONITRATE [Concomitant]
     Route: 048
     Dates: start: 20050329
  8. ASPIRIN [Concomitant]
     Route: 048
     Dates: start: 20050329
  9. PERINDOPRIL ERBUMINE [Concomitant]
     Indication: HYPERTENSION
     Route: 048
     Dates: start: 20050418
  10. UNSPECIFIED DRUG [Concomitant]
     Indication: THROMBOSIS PROPHYLAXIS
     Route: 048
     Dates: start: 20050704

REACTIONS (1)
  - MYOCARDIAL INFARCTION [None]
